FAERS Safety Report 10006285 (Version 1)
Quarter: 2014Q1

REPORT INFORMATION
  Report Type: Spontaneous
  Country: CN (occurrence: CN)
  Receive Date: 20140313
  Receipt Date: 20140313
  Transmission Date: 20141002
  Serious: Yes (Hospitalization, Other)
  Sender: FDA-Public Use
  Company Number: CN-MERCK-1403CHN005409

PATIENT
  Age: 72 Year
  Sex: Male

DRUGS (2)
  1. PROSCAR [Suspect]
     Indication: BENIGN PROSTATIC HYPERPLASIA
     Dosage: 5 MG, QD
     Route: 048
     Dates: start: 2011, end: 20130801
  2. CARDURA XL [Concomitant]
     Indication: BENIGN PROSTATIC HYPERPLASIA
     Dosage: 1 DF, QD
     Route: 048
     Dates: start: 2011

REACTIONS (5)
  - Prostate cancer [Recovering/Resolving]
  - Prostatic operation [Unknown]
  - Urinary retention [Unknown]
  - Dysuria [Unknown]
  - Drug administration error [Unknown]
